FAERS Safety Report 5400165-9 (Version None)
Quarter: 2007Q3

REPORT INFORMATION
  Report Type: 
  Country: None (occurrence: None)
  Receive Date: 20070725
  Receipt Date: 20070712
  Transmission Date: 20080115
  Serious: Yes (Life-Threatening, Hospitalization, Disabling, Other)
  Sender: FDA-Public Use
  Company Number: GXKR2007GB06024

PATIENT
  Age: 77 Year
  Sex: Male
  Weight: 55 kg

DRUGS (6)
  1. WARFARIN SODIUM [Suspect]
     Indication: MITRAL VALVE REPLACEMENT
     Dosage: ORAL
     Route: 048
     Dates: start: 20030101, end: 20070609
  2. HEPARIN [Suspect]
     Indication: MITRAL VALVE REPLACEMENT
     Dosage: INTRAVENOUS
     Route: 042
     Dates: start: 20070620, end: 20070621
  3. AMIODARONE HCL [Concomitant]
  4. RAMIPRIL [Concomitant]
  5. RANITIDINE (RANITIDINE) [Concomitant]
  6. SIMVASTATIN [Concomitant]

REACTIONS (4)
  - FALL [None]
  - GLASGOW COMA SCALE ABNORMAL [None]
  - INTERNATIONAL NORMALISED RATIO INCREASED [None]
  - SUBDURAL HAEMORRHAGE [None]
